FAERS Safety Report 25555311 (Version 1)
Quarter: 2025Q3

REPORT INFORMATION
  Report Type: Spontaneous
  Country: US (occurrence: None)
  Receive Date: 20250715
  Receipt Date: 20250715
  Transmission Date: 20251020
  Serious: Yes (Hospitalization)
  Sender: FDA-CTU
  Company Number: None

PATIENT
  Age: 15 Year
  Sex: Male
  Weight: 46.4 kg

DRUGS (3)
  1. BLEOMYCIN [Suspect]
     Active Substance: BLEOMYCIN SULFATE
  2. CARBOPLATIN [Suspect]
     Active Substance: CARBOPLATIN
  3. ETOPOSIDE [Suspect]
     Active Substance: ETOPOSIDE

REACTIONS (3)
  - Viraemia [None]
  - Neutropenia [None]
  - Varicella [None]

NARRATIVE: CASE EVENT DATE: 20250604
